FAERS Safety Report 16016001 (Version 1)
Quarter: 2019Q1

REPORT INFORMATION
  Report Type: Spontaneous
  Country: GB (occurrence: GB)
  Receive Date: 20190228
  Receipt Date: 20190228
  Transmission Date: 20190418
  Serious: Yes (Hospitalization)
  Sender: FDA-Public Use
  Company Number: GB-ACCORD-109314

PATIENT
  Age: 79 Year
  Sex: Male

DRUGS (12)
  1. LANSOPRAZOLE. [Concomitant]
     Active Substance: LANSOPRAZOLE
     Dosage: IN THE MORNING.
  2. ZOPICLONE [Concomitant]
     Active Substance: ZOPICLONE
     Dosage: AT NIGHT.
  3. PARACETAMOL [Concomitant]
     Active Substance: ACETAMINOPHEN
  4. CLOPIDOGREL [Suspect]
     Active Substance: CLOPIDOGREL BISULFATE
     Indication: PRODUCT USED FOR UNKNOWN INDICATION
  5. SITAGLIPTIN/SITAGLIPTIN PHOSPHATE [Concomitant]
  6. BETAMETHASONE. [Concomitant]
     Active Substance: BETAMETHASONE
  7. CALCIPOTRIOL [Concomitant]
     Active Substance: CALCIPOTRIENE
  8. COCODAMOL [Concomitant]
     Active Substance: ACETAMINOPHEN\CODEINE PHOSPHATE
     Dosage: 15MG/500MG. ONE OR TWO TO BE TAKEN FOUR TIMES A DAY, NOT WITH PARACETAMOL.
  9. ATORVASTATIN [Concomitant]
     Active Substance: ATORVASTATIN
     Dosage: AT NIGHT.
  10. MORPHINE [Concomitant]
     Active Substance: MORPHINE
  11. METFORMIN [Concomitant]
     Active Substance: METFORMIN HYDROCHLORIDE
     Dosage: TAKE WITH FOOD.
  12. ISOPROPYL MYRISTATE/PARAFFIN/LIQUID [Concomitant]
     Dosage: AS DIRECTED.

REACTIONS (2)
  - Cerebrovascular accident [Unknown]
  - Subdural haematoma [Unknown]
